FAERS Safety Report 12264223 (Version 1)
Quarter: 2016Q2

REPORT INFORMATION
  Report Type: Spontaneous
  Country: US (occurrence: US)
  Receive Date: 20160413
  Receipt Date: 20160413
  Transmission Date: 20160815
  Serious: No
  Sender: FDA-Public Use
  Company Number: US-JNJFOC-20160218255

PATIENT
  Age: 58 Year
  Sex: Female
  Weight: 50.8 kg

DRUGS (2)
  1. WOMENS ROGAINE UNSCENTED [Suspect]
     Active Substance: MINOXIDIL
     Route: 061
  2. WOMENS ROGAINE UNSCENTED [Suspect]
     Active Substance: MINOXIDIL
     Indication: ALOPECIA
     Dosage: HALF A CAP
     Route: 061
     Dates: start: 20160209

REACTIONS (9)
  - Mycotic allergy [None]
  - Product physical consistency issue [None]
  - Pruritus [Recovered/Resolved]
  - Product formulation issue [Unknown]
  - Erythema [Recovering/Resolving]
  - Drug administered at inappropriate site [Recovering/Resolving]
  - Product label issue [Unknown]
  - Product label confusion [Unknown]
  - Eczema [Unknown]
